FAERS Safety Report 21055961 (Version 1)
Quarter: 2022Q3

REPORT INFORMATION
  Report Type: Spontaneous
  Country: TR (occurrence: TR)
  Receive Date: 20220708
  Receipt Date: 20220708
  Transmission Date: 20221026
  Serious: Yes (Hospitalization)
  Sender: FDA-Public Use
  Company Number: TR-NOVOPROD-933260

PATIENT
  Sex: Female
  Weight: 3.66 kg

DRUGS (2)
  1. LEVEMIR [Suspect]
     Active Substance: INSULIN DETEMIR
     Indication: Gestational diabetes
     Dosage: 6 IU, QD
     Route: 064
     Dates: start: 20220310, end: 20220527
  2. NOVORAPID [Suspect]
     Active Substance: INSULIN ASPART
     Indication: Gestational diabetes
     Dosage: 4 IU, TID
     Route: 064
     Dates: start: 20220310, end: 20220527

REACTIONS (4)
  - Jaundice neonatal [Recovered/Resolved]
  - Neonatal respiratory failure [Recovered/Resolved]
  - Premature baby [Unknown]
  - Foetal exposure during pregnancy [Recovered/Resolved]

NARRATIVE: CASE EVENT DATE: 20210906
